FAERS Safety Report 5241761-1 (Version None)
Quarter: 2007Q1

REPORT INFORMATION
  Report Type: 
  Country: None (occurrence: None)
  Receive Date: 20070220
  Receipt Date: 20070214
  Transmission Date: 20070707
  Serious: Yes (Death, Hospitalization)
  Sender: FDA-Public Use
  Company Number: 2007CG00277

PATIENT
  Age: 96 Year
  Sex: Female
  Weight: 55 kg

DRUGS (13)
  1. NEXIUM [Suspect]
     Route: 042
     Dates: start: 20061108, end: 20061108
  2. NEXIUM [Suspect]
     Route: 042
     Dates: start: 20061109, end: 20061113
  3. NEXIUM [Suspect]
     Route: 048
     Dates: start: 20061113
  4. KARDEGIC [Suspect]
     Route: 048
     Dates: end: 20061108
  5. VOLTAREN [Suspect]
     Route: 048
     Dates: end: 20061108
  6. MODOPAR [Concomitant]
     Route: 048
  7. TRIVASTAL [Concomitant]
     Route: 048
     Dates: end: 20061113
  8. DAFLON [Concomitant]
     Route: 048
  9. METEOXANE [Concomitant]
     Route: 048
     Dates: end: 20061101
  10. MOVICOL [Concomitant]
     Dates: end: 20061101
  11. OFLOCET [Concomitant]
     Route: 048
     Dates: start: 20061111
  12. SERESTA [Concomitant]
     Dates: end: 20061113
  13. LASIX [Concomitant]
     Route: 042
     Dates: start: 20061108

REACTIONS (3)
  - HYPOGLYCAEMIA [None]
  - PEPTIC ULCER HAEMORRHAGE [None]
  - STATUS EPILEPTICUS [None]
